FAERS Safety Report 5015498-8 (Version None)
Quarter: 2006Q2

REPORT INFORMATION
  Report Type: 
  Country: None (occurrence: None)
  Receive Date: 20060530
  Receipt Date: 20060530
  Transmission Date: 20061013
  Serious: Yes (Life-Threatening, Hospitalization, Other)
  Sender: FDA-Public Use
  Company Number: None

PATIENT
  Age: 49 Year
  Sex: Female
  Weight: 83.0083 kg

DRUGS (1)
  1. SEPTOCAINE [Suspect]
     Indication: ENDODONTIC PROCEDURE
     Dosage: DENTAL
     Route: 004
     Dates: start: 20060525, end: 20060526

REACTIONS (10)
  - COGNITIVE DISORDER [None]
  - CONDITION AGGRAVATED [None]
  - DIFFICULTY IN WALKING [None]
  - DYSPNOEA [None]
  - FATIGUE [None]
  - HEADACHE [None]
  - HEART RATE INCREASED [None]
  - MUSCLE DISORDER [None]
  - MYASTHENIA GRAVIS [None]
  - VISION BLURRED [None]
